FAERS Safety Report 7998910-1 (Version None)
Quarter: 2011Q4

REPORT INFORMATION
  Report Type: 
  Country: None (occurrence: None)
  Receive Date: 20111221
  Receipt Date: 20111215
  Transmission Date: 20120403
  Serious: Yes (Hospitalization)
  Sender: FDA-Public Use
  Company Number: JP-GLAXOSMITHKLINE-B0760893A

PATIENT
  Sex: Male

DRUGS (2)
  1. ZOLOFT [Concomitant]
     Route: 048
  2. LAMICTAL [Suspect]
     Indication: EPILEPSY
     Route: 048
     Dates: start: 20110301

REACTIONS (2)
  - STEVENS-JOHNSON SYNDROME [None]
  - AFFECTIVE DISORDER [None]
